FAERS Safety Report 10995012 (Version 1)
Quarter: 2015Q2

REPORT INFORMATION
  Report Type: Spontaneous
  Country: US (occurrence: US)
  Receive Date: 20150407
  Receipt Date: 20150407
  Transmission Date: 20150821
  Serious: Yes (Life-Threatening, Congenital Anomaly, Other)
  Sender: FDA-Public Use
  Company Number: US-GLAXOSMITHKLINE-US2015GSK045572

PATIENT
  Sex: Female

DRUGS (1)
  1. ZOFRAN [Suspect]
     Active Substance: ONDANSETRON HYDROCHLORIDE
     Indication: VOMITING IN PREGNANCY

REACTIONS (8)
  - Cleft lip repair [Unknown]
  - Bone graft [Unknown]
  - Foetal exposure during pregnancy [Unknown]
  - Off label use [Unknown]
  - Cleft palate repair [Unknown]
  - Cleft palate [Not Recovered/Not Resolved]
  - Congenital anomaly [Not Recovered/Not Resolved]
  - Cleft lip [Not Recovered/Not Resolved]

NARRATIVE: CASE EVENT DATE: 1998
